FAERS Safety Report 6999301-2 (Version None)
Quarter: 2010Q3

REPORT INFORMATION
  Report Type: 
  Country: None (occurrence: None)
  Receive Date: 20100920
  Receipt Date: 20100906
  Transmission Date: 20110219
  Serious: Yes (Other)
  Sender: FDA-Public Use
  Company Number: PHHY2010SG58733

PATIENT
  Age: 40 Year
  Sex: Male

DRUGS (7)
  1. CYCLOSPORINE [Suspect]
     Indication: STILL'S DISEASE ADULT ONSET
     Dosage: 50-100 MG/DAY
  2. PREDNISOLONE [Concomitant]
     Indication: STILL'S DISEASE ADULT ONSET
     Route: 048
  3. PREDNISOLONE [Concomitant]
     Dosage: 5 MG/DAY
  4. GLUCOCORTICOIDS [Concomitant]
  5. INFLIXIMAB [Concomitant]
     Dosage: 3 MG/KG
  6. MTX [Concomitant]
     Dosage: 20 MG/ WEEK
  7. LEFLUNOMIDE [Concomitant]
     Dosage: 20 MG, QD

REACTIONS (12)
  - ARTHRITIS [None]
  - BONE EROSION [None]
  - FATIGUE [None]
  - HYPERGLYCAEMIA [None]
  - HYPERTENSION [None]
  - INJECTION SITE PAIN [None]
  - OSTEOPOROSIS [None]
  - POLYARTHRITIS [None]
  - RED BLOOD CELL SEDIMENTATION RATE INCREASED [None]
  - STILL'S DISEASE ADULT ONSET [None]
  - TYPE 2 LEPRA REACTION [None]
  - VULVOVAGINAL CANDIDIASIS [None]
